FAERS Safety Report 16010616 (Version 1)
Quarter: 2019Q1

REPORT INFORMATION
  Report Type: Spontaneous
  Country: US (occurrence: US)
  Receive Date: 20190225
  Receipt Date: 20190225
  Transmission Date: 20190418
  Serious: Yes (Other)
  Sender: FDA-Public Use
  Company Number: PHEH2019US008394

PATIENT
  Sex: Male

DRUGS (1)
  1. TASIGNA [Suspect]
     Active Substance: NILOTINIB
     Indication: CHRONIC MYELOID LEUKAEMIA
     Dosage: 200 MG, BID
     Route: 048

REACTIONS (31)
  - Dysarthria [Unknown]
  - Skin ulcer [Unknown]
  - Arthralgia [Unknown]
  - Cerebral thrombosis [Unknown]
  - Atrial fibrillation [Unknown]
  - Ischaemic stroke [Unknown]
  - Hypoaesthesia [Unknown]
  - Cardiac murmur [Unknown]
  - Dizziness [Unknown]
  - Transient ischaemic attack [Unknown]
  - Dysphagia [Unknown]
  - Aphasia [Unknown]
  - Peripheral vascular disorder [Unknown]
  - Hypoxia [Unknown]
  - Carotid artery stenosis [Unknown]
  - Syncope [Unknown]
  - Bronchitis chronic [Unknown]
  - Chronic respiratory failure [Unknown]
  - Sepsis [Unknown]
  - Ischaemic cardiomyopathy [Unknown]
  - Chronic obstructive pulmonary disease [Unknown]
  - Psychomotor retardation [Unknown]
  - Cerebral infarction [Unknown]
  - Arteriosclerosis coronary artery [Unknown]
  - Depression [Unknown]
  - Peripheral arterial occlusive disease [Unknown]
  - Asthenia [Unknown]
  - Postoperative wound infection [Unknown]
  - Pneumonia [Unknown]
  - Anaemia [Unknown]
  - Headache [Unknown]
